FAERS Safety Report 18545617 (Version 1)
Quarter: 2020Q4

REPORT INFORMATION
  Report Type: Not Available
  Country: US (occurrence: None)
  Receive Date: 20201125
  Receipt Date: 20201125
  Transmission Date: 20210114
  Serious: Yes (Other)
  Sender: FDA-Public Use
  Company Number: US-AKORN-156671

PATIENT
  Sex: Female

DRUGS (1)
  1. ACETIC ACID SOLUTION. 0.25% BAXTER [Suspect]
     Active Substance: ACETIC ACID

REACTIONS (2)
  - Product administration error [Unknown]
  - Eye irritation [Unknown]
